FAERS Safety Report 6021030-2 (Version None)
Quarter: 2008Q4

REPORT INFORMATION
  Report Type: 
  Country: None (occurrence: None)
  Receive Date: 20081229
  Receipt Date: 20081219
  Transmission Date: 20090506
  Serious: Yes (Death, Hospitalization)
  Sender: FDA-Public Use
  Company Number: US-BIOGENIDEC-2008BI009939

PATIENT
  Age: 54 Year
  Sex: Female

DRUGS (3)
  1. AVONEX [Suspect]
     Indication: MULTIPLE SCLEROSIS
     Route: 030
  2. AVONEX [Suspect]
     Route: 030
     Dates: end: 20070401
  3. AVONEX [Suspect]
     Route: 030
     Dates: start: 20080301

REACTIONS (3)
  - FALL [None]
  - PANCREATIC CARCINOMA [None]
  - SPLENECTOMY [None]
